FAERS Safety Report 22394632 (Version 1)
Quarter: 2023Q2

REPORT INFORMATION
  Report Type: Spontaneous
  Country: UA (occurrence: None)
  Receive Date: 20230601
  Receipt Date: 20230601
  Transmission Date: 20230721
  Serious: Yes (Other)
  Sender: FDA-Public Use
  Company Number: 2023A123386

PATIENT
  Age: 81 Year
  Sex: Female
  Weight: 70 kg

DRUGS (1)
  1. SYMBICORT [Suspect]
     Active Substance: BUDESONIDE\FORMOTEROL FUMARATE DIHYDRATE
     Indication: Chronic obstructive pulmonary disease
     Dosage: 160/4.5 MCG FOR 2 INHALATIONS TWICE A DAY
     Route: 055
     Dates: start: 20230510, end: 20230523

REACTIONS (3)
  - Tachycardia [Unknown]
  - Immune-mediated adverse reaction [Unknown]
  - Respiratory disorder [Unknown]
